FAERS Safety Report 18405181 (Version 1)
Quarter: 2020Q4

REPORT INFORMATION
  Report Type: Report from Study
  Country: DE (occurrence: DE)
  Receive Date: 20201020
  Receipt Date: 20201020
  Transmission Date: 20210114
  Serious: Yes (Hospitalization)
  Sender: FDA-Public Use
  Company Number: DE-PFIZER INC-2020135327

PATIENT
  Sex: Female

DRUGS (11)
  1. NO SUBJECT DRUG [Suspect]
     Active Substance: UNSPECIFIED INGREDIENT
     Dosage: NO DOSE GIVEN
  2. METAMIZOLE [Concomitant]
     Active Substance: METAMIZOLE
     Dosage: 1 DF, 4X/DAY
     Route: 065
  3. ORTOTON [METHOCARBAMOL] [Concomitant]
     Active Substance: METHOCARBAMOL
     Dosage: UNK, AS NEEDED
     Route: 065
  4. ZOPICLONE [Concomitant]
     Active Substance: ZOPICLONE
     Dosage: UNK, 1X/DAY AT NIGHT
     Route: 065
  5. RIXATHON [Suspect]
     Active Substance: RITUXIMAB
     Dosage: 1000 MG
     Route: 042
     Dates: start: 20190718
  6. MAGNESIUM VERLA [MAGNESIUM ASPARTATE] [Concomitant]
     Dosage: UNK
  7. TORASEMID [Concomitant]
     Active Substance: TORSEMIDE
     Dosage: 1 DF
     Route: 065
  8. LEVOCETIRIZIN [Concomitant]
     Active Substance: LEVOCETIRIZINE DIHYDROCHLORIDE
     Dosage: 2 DF, 1X/DAY
     Route: 065
  9. METHOTREXATE SODIUM. [Suspect]
     Active Substance: METHOTREXATE SODIUM
     Dosage: 15 MG, 1X/WEEKLY
     Route: 065
     Dates: end: 201911
  10. OMEPRAZOL [Concomitant]
     Active Substance: OMEPRAZOLE
     Dosage: 1 DF, 1X/DAY
     Route: 065
  11. OXYCODONE [OXYCODONE HYDROCHLORIDE] [Concomitant]
     Active Substance: OXYCODONE HYDROCHLORIDE
     Dosage: 3 DF, 1X/DAY
     Route: 065

REACTIONS (11)
  - Pain in extremity [Recovered/Resolved]
  - Spinal osteoarthritis [Not Recovered/Not Resolved]
  - Arthralgia [Recovered/Resolved]
  - Synovial cyst [Unknown]
  - Dry skin [Not Recovered/Not Resolved]
  - Musculoskeletal pain [Recovered/Resolved]
  - Pain [Recovered/Resolved]
  - Dyspnoea [Not Recovered/Not Resolved]
  - Gingivitis [Recovered/Resolved]
  - Gingivitis [Unknown]
  - Rheumatoid arthritis [Recovered/Resolved]

NARRATIVE: CASE EVENT DATE: 20190810
